FAERS Safety Report 4499092-3 (Version None)
Quarter: 2004Q4

REPORT INFORMATION
  Report Type: 
  Country: None (occurrence: None)
  Receive Date: 20041108
  Receipt Date: 20041027
  Transmission Date: 20050328
  Serious: No
  Sender: FDA-Public Use
  Company Number: 2004-121767-NL

PATIENT
  Age: 19 Year
  Sex: Female

DRUGS (4)
  1. MIRTAZAPINE [Suspect]
     Dosage: 1 DF, ORAL
     Route: 048
  2. BUSPIRONE HCL [Concomitant]
  3. FLUOXETINE [Concomitant]
  4. ZOPICLONE [Concomitant]

REACTIONS (6)
  - CONVULSION [None]
  - EYE ROLLING [None]
  - FALL [None]
  - LOSS OF CONSCIOUSNESS [None]
  - SALIVARY HYPERSECRETION [None]
  - TREMOR [None]
